FAERS Safety Report 25129543 (Version 2)
Quarter: 2025Q2

REPORT INFORMATION
  Report Type: Spontaneous
  Country: IT (occurrence: IT)
  Receive Date: 20250327
  Receipt Date: 20250401
  Transmission Date: 20250716
  Serious: Yes (Hospitalization, Other)
  Sender: PFIZER
  Company Number: IT-PFIZER INC-PV202500035241

PATIENT
  Age: 80 Year
  Sex: Female

DRUGS (1)
  1. DOPAMINE HYDROCHLORIDE [Suspect]
     Active Substance: DOPAMINE HYDROCHLORIDE
     Indication: Nephropathy

REACTIONS (1)
  - Acute generalised exanthematous pustulosis [Unknown]
